FAERS Safety Report 9691305 (Version 2)
Quarter: 2013Q4

REPORT INFORMATION
  Report Type: Report from Study
  Country: GB (occurrence: GB)
  Receive Date: 20131115
  Receipt Date: 20131115
  Transmission Date: 20140711
  Serious: Yes (Hospitalization)
  Sender: FDA-Public Use
  Company Number: GB-ABBVIE-12P-167-0939491-01

PATIENT
  Age: 55 Year
  Sex: Female
  Weight: 82 kg

DRUGS (6)
  1. HUMIRA [Suspect]
     Indication: CROHN^S DISEASE
     Route: 058
     Dates: start: 200806, end: 200806
  2. HUMIRA [Suspect]
     Route: 058
  3. HUMIRA [Suspect]
     Route: 058
     Dates: start: 20091006
  4. AZATHIOPRINE [Concomitant]
     Indication: CROHN^S DISEASE
     Dates: start: 200708
  5. CODEINE [Concomitant]
     Indication: PAIN
     Dates: start: 200904
  6. CODEINE [Concomitant]
     Indication: CROHN^S DISEASE

REACTIONS (1)
  - Upper motor neurone lesion [Recovered/Resolved]
